FAERS Safety Report 14329942 (Version 7)
Quarter: 2019Q1

REPORT INFORMATION
  Report Type: Report from Study
  Country: US (occurrence: US)
  Receive Date: 20171227
  Receipt Date: 20190107
  Transmission Date: 20190417
  Serious: Yes (Hospitalization)
  Sender: FDA-Public Use
  Company Number: US-ACTELION-A-US2013-80118

PATIENT
  Age: 36 Year
  Sex: Female
  Weight: 81.63 kg

DRUGS (6)
  1. WARFARIN [Concomitant]
     Active Substance: WARFARIN
  2. VELETRI [Suspect]
     Active Substance: EPOPROSTENOL
     Indication: PULMONARY ARTERIAL HYPERTENSION
     Dosage: 15.4 NG/KG, PER MIN
     Route: 042
     Dates: start: 20120330
  3. COUMADIN [Concomitant]
     Active Substance: WARFARIN SODIUM
  4. VELETRI [Suspect]
     Active Substance: EPOPROSTENOL
     Dosage: UNK
     Route: 042
  5. LETAIRIS [Concomitant]
     Active Substance: AMBRISENTAN
     Dosage: UNK
     Dates: end: 201805
  6. REVATIO [Concomitant]
     Active Substance: SILDENAFIL CITRATE

REACTIONS (22)
  - Pneumonia [Unknown]
  - Rash [Unknown]
  - Gastroenteritis viral [Unknown]
  - Feeling abnormal [Unknown]
  - Flushing [Unknown]
  - Dyspnoea exertional [Unknown]
  - Palpitations [Unknown]
  - Device leakage [Unknown]
  - Diarrhoea [Unknown]
  - Pulse abnormal [Unknown]
  - Hospitalisation [Unknown]
  - Periorbital oedema [Unknown]
  - Heart rate increased [Unknown]
  - Catheter site nodule [Recovered/Resolved]
  - Dehydration [Unknown]
  - Headache [Unknown]
  - Rash erythematous [Unknown]
  - Dyspnoea [Unknown]
  - Pain in jaw [Unknown]
  - Fluid overload [Unknown]
  - Thyroid function test abnormal [Unknown]
  - Sinusitis [Unknown]
